FAERS Safety Report 7102481-1 (Version None)
Quarter: 2010Q4

REPORT INFORMATION
  Report Type: 
  Country: None (occurrence: None)
  Receive Date: 20101115
  Receipt Date: 20090512
  Transmission Date: 20110411
  Serious: No
  Sender: FDA-Public Use
  Company Number: 2009BI014457

PATIENT
  Sex: Female
  Weight: 70 kg

DRUGS (1)
  1. TYSABRI [Suspect]
     Indication: MULTIPLE SCLEROSIS
     Route: 042
     Dates: start: 20081211

REACTIONS (28)
  - APATHY [None]
  - APHONIA [None]
  - ARTHRALGIA [None]
  - ARTHRITIS [None]
  - BAND SENSATION [None]
  - CHRONIC SINUSITIS [None]
  - CONTUSION [None]
  - COORDINATION ABNORMAL [None]
  - DEPRESSION [None]
  - DISTURBANCE IN ATTENTION [None]
  - DRUG INEFFECTIVE [None]
  - EYE PRURITUS [None]
  - FACIAL PAIN [None]
  - FALL [None]
  - FATIGUE [None]
  - GAIT DISTURBANCE [None]
  - GENERAL PHYSICAL HEALTH DETERIORATION [None]
  - HEADACHE [None]
  - HEMIPARESIS [None]
  - MULTIPLE SCLEROSIS [None]
  - MUSCLE ATROPHY [None]
  - MUSCULOSKELETAL PAIN [None]
  - MUSCULOSKELETAL STIFFNESS [None]
  - NERVOUSNESS [None]
  - PYREXIA [None]
  - SWELLING FACE [None]
  - THERMAL BURN [None]
  - VIRAL INFECTION [None]
